FAERS Safety Report 5298712-3 (Version None)
Quarter: 2007Q1

REPORT INFORMATION
  Report Type: 
  Country: None (occurrence: None)
  Receive Date: 20070201
  Receipt Date: 20061027
  Transmission Date: 20070707
  Serious: No
  Sender: FDA-Public Use
  Company Number: 2006PV024095

PATIENT
  Age: 46 Year
  Sex: Male
  Weight: 108.8633 kg

DRUGS (8)
  1. BYETTA [Suspect]
     Indication: DIABETES MELLITUS NON-INSULIN-DEPENDENT
     Dosage: 5 MCG; BID; SC
     Route: 058
     Dates: start: 20061005, end: 20061026
  2. METFORMIN HCL [Concomitant]
  3. GLUCOTROL [Concomitant]
  4. ACTOS [Concomitant]
  5. CYMBALTA [Concomitant]
  6. CONCERTA [Concomitant]
  7. TRAZODONE HCL [Concomitant]
  8. STRATTERA [Concomitant]

REACTIONS (3)
  - FEELING ABNORMAL [None]
  - HYPERGLYCAEMIA [None]
  - WEIGHT INCREASED [None]
